FAERS Safety Report 19783135 (Version 1)
Quarter: 2021Q3

REPORT INFORMATION
  Report Type: Spontaneous
  Country: IN (occurrence: IN)
  Receive Date: 20210903
  Receipt Date: 20210903
  Transmission Date: 20211014
  Serious: Yes (Disabling, Other)
  Sender: FDA-Public Use
  Company Number: IN-CIPLA LTD.-2021IN06031

PATIENT

DRUGS (1)
  1. TOPIRAMATE. [Suspect]
     Active Substance: TOPIRAMATE
     Indication: MIGRAINE
     Dosage: 100 MILLIGRAM, DAILY
     Route: 048

REACTIONS (9)
  - Uveitis [Recovered/Resolved]
  - Ciliary body disorder [Unknown]
  - Choroidal effusion [Unknown]
  - Hypopyon [Recovered/Resolved]
  - Iridocyclitis [Recovered/Resolved]
  - Hypotony of eye [Recovered/Resolved]
  - Narrow anterior chamber angle [Recovered/Resolved]
  - Choroidal detachment [Recovered/Resolved]
  - Flat anterior chamber of eye [Recovered/Resolved]
